FAERS Safety Report 10911070 (Version 1)
Quarter: 2015Q1

REPORT INFORMATION
  Report Type: Spontaneous
  Country: GB (occurrence: GB)
  Receive Date: 20150312
  Receipt Date: 20150312
  Transmission Date: 20150721
  Serious: Yes (Other)
  Sender: FDA-Public Use
  Company Number: ALCN2015GB001629

PATIENT
  Age: 67 Year
  Sex: Male
  Weight: 87 kg

DRUGS (7)
  1. METRONIDAZOLE. [Concomitant]
     Active Substance: METRONIDAZOLE
     Dosage: 1 DF, TID
     Dates: start: 20150217, end: 20150224
  2. BISOPROLOL [Concomitant]
     Active Substance: BISOPROLOL
     Dosage: 1 DF, QD
     Dates: start: 20111202
  3. CIPROFLOXACIN. [Suspect]
     Active Substance: CIPROFLOXACIN
     Dosage: UNK
     Dates: start: 20150224
  4. CETIRIZINE [Concomitant]
     Active Substance: CETIRIZINE HYDROCHLORIDE
     Dosage: 1 DF, BID
     Dates: start: 20090206
  5. CYCLIZINE [Concomitant]
     Active Substance: CYCLIZINE
     Dosage: 1 DF, TID
     Dates: start: 20150222
  6. OLOPATADINE [Concomitant]
     Active Substance: OLOPATADINE
     Dosage: 1 DF, QD
     Dates: start: 20080215
  7. WHITE SOFT PARAFFIN [Concomitant]
     Dosage: 1 DF, PRN
     Dates: start: 20110920

REACTIONS (1)
  - Clostridium difficile infection [Recovering/Resolving]

NARRATIVE: CASE EVENT DATE: 20150224
